FAERS Safety Report 9345621 (Version 1)
Quarter: 2013Q2

REPORT INFORMATION
  Report Type: Spontaneous
  Country: JP (occurrence: JP)
  Receive Date: 20130613
  Receipt Date: 20130613
  Transmission Date: 20140414
  Serious: Yes (Disabling)
  Sender: FDA-Public Use
  Company Number: JP-ASTRAZENECA-2012SE92351

PATIENT
  Age: 71 Year
  Sex: Female

DRUGS (1)
  1. MARCAIN [Suspect]
     Dosage: DOSE UNKNOWN
     Route: 065

REACTIONS (1)
  - Eye movement disorder [Not Recovered/Not Resolved]
